FAERS Safety Report 9311409 (Version 1)
Quarter: 2013Q2

REPORT INFORMATION
  Report Type: Spontaneous
  Country: US (occurrence: US)
  Receive Date: 20130528
  Receipt Date: 20130528
  Transmission Date: 20140414
  Serious: Yes (Hospitalization)
  Sender: FDA-Public Use
  Company Number: US-BAYER-2013-065029

PATIENT
  Age: 36 Year
  Sex: Female

DRUGS (9)
  1. YAZ [Suspect]
  2. YASMIN [Suspect]
  3. OCELLA [Suspect]
  4. METFORMIN [Concomitant]
     Dosage: UNK
     Dates: start: 20100706
  5. JANUVIA [Concomitant]
     Dosage: UNK
     Dates: start: 20100706
  6. LAMICTAL [Concomitant]
     Dosage: UNK
     Dates: start: 20100706
  7. VITAMIN D [Concomitant]
     Dosage: UNK
     Dates: start: 20100706
  8. ZYRTEC [Concomitant]
     Dosage: UNK
     Dates: start: 20100706
  9. MULTIVITAMIN [Concomitant]

REACTIONS (1)
  - Deep vein thrombosis [Recovered/Resolved]
